FAERS Safety Report 6834057-5 (Version None)
Quarter: 2010Q3

REPORT INFORMATION
  Report Type: 
  Country: None (occurrence: None)
  Receive Date: 20100712
  Receipt Date: 20070409
  Transmission Date: 20110219
  Serious: No
  Sender: FDA-Public Use
  Company Number: US-PFIZER INC-2007028387

PATIENT
  Sex: Male

DRUGS (3)
  1. CHANTIX [Suspect]
     Dates: start: 20070403
  2. WARFARIN SODIUM [Interacting]
  3. INSULIN [Interacting]

REACTIONS (3)
  - DIARRHOEA [None]
  - DRUG INTERACTION [None]
  - FLATULENCE [None]
